FAERS Safety Report 12570353 (Version 1)
Quarter: 2016Q3

REPORT INFORMATION
  Report Type: Spontaneous
  Country: US (occurrence: US)
  Receive Date: 20160719
  Receipt Date: 20160719
  Transmission Date: 20161109
  Serious: No
  Sender: FDA-Public Use
  Company Number: US-LPDUSPRD-20160265

PATIENT
  Age: 73 Year
  Sex: Female

DRUGS (1)
  1. NITROGLYCERIN INJECTION, USP (4810-10) [Suspect]
     Active Substance: NITROGLYCERIN
     Dosage: DOSE NOT SPECIFIED
     Route: 065

REACTIONS (1)
  - Headache [Unknown]
